FAERS Safety Report 7957866-8 (Version None)
Quarter: 2011Q4

REPORT INFORMATION
  Report Type: 
  Country: None (occurrence: None)
  Receive Date: 20111205
  Receipt Date: 20111123
  Transmission Date: 20120403
  Serious: Yes (Hospitalization)
  Sender: FDA-Public Use
  Company Number: AU-MPIJNJ-2011-04879

PATIENT

DRUGS (37)
  1. DEXAMETHASONE [Suspect]
     Indication: MULTIPLE MYELOMA
     Dosage: 12 MG, UNK
     Route: 065
     Dates: start: 20110930, end: 20111118
  2. FENTANYL [Concomitant]
     Dosage: UNK
     Route: 061
     Dates: start: 20100120
  3. PHOSPHATE                          /01318702/ [Concomitant]
     Dosage: UNK
     Route: 042
     Dates: start: 20111101, end: 20111102
  4. NILSTAT                            /00036501/ [Concomitant]
     Indication: ANTIFUNGAL TREATMENT
     Dosage: UNK
     Route: 048
     Dates: start: 20111012, end: 20111024
  5. VORICONAZOLE [Concomitant]
     Indication: ANTIFUNGAL PROPHYLAXIS
     Dosage: UNK
     Route: 048
     Dates: start: 20111017
  6. ROMIDEPSIN [Suspect]
     Indication: MULTIPLE MYELOMA
     Dosage: 18.5 MG, UNK
     Route: 065
     Dates: start: 20110930, end: 20111114
  7. FLUCONAZOLE [Concomitant]
     Indication: ANTIFUNGAL TREATMENT
     Dosage: UNK
     Route: 042
     Dates: start: 20111012, end: 20111013
  8. GABAPENTIN [Concomitant]
     Dosage: UNK
     Route: 048
     Dates: start: 20111031, end: 20111103
  9. POTASSIUM ACETATE [Concomitant]
     Dosage: UNK
     Route: 048
     Dates: start: 20111030, end: 20111031
  10. VALTREX [Concomitant]
     Indication: ANTIVIRAL PROPHYLAXIS
     Dosage: UNK
     Route: 048
     Dates: start: 20110930
  11. BACLOFEN [Concomitant]
     Indication: MUSCLE RELAXANT THERAPY
     Dosage: UNK
     Route: 048
     Dates: start: 20111027
  12. ALLOPURINOL [Concomitant]
     Indication: ANTACID THERAPY
     Dosage: UNK
     Route: 048
     Dates: start: 20110930, end: 20111024
  13. DIPROSONE                          /00008504/ [Concomitant]
     Dosage: UNK
     Route: 061
     Dates: start: 20110914
  14. KYTRIL [Concomitant]
     Indication: ANTIEMETIC SUPPORTIVE CARE
     Dosage: UNK
     Route: 042
     Dates: start: 20110930
  15. POTASSIUM CHLORIDE [Concomitant]
     Indication: SUPPLEMENTATION THERAPY
     Dosage: UNK
     Route: 042
     Dates: start: 20111012, end: 20111014
  16. FENTANYL [Concomitant]
     Indication: PAIN
     Dosage: 100 MG, UNK
     Route: 048
     Dates: start: 20100111
  17. ASPIRIN [Concomitant]
     Indication: PROPHYLAXIS
     Dosage: UNK
     Route: 048
     Dates: start: 20110117, end: 20111007
  18. PHOSPHATE                          /01318702/ [Concomitant]
     Indication: SUPPLEMENTATION THERAPY
     Dosage: UNK
     Route: 042
     Dates: start: 20111012, end: 20111014
  19. NILSTAT                            /00036501/ [Concomitant]
     Dosage: UNK
     Route: 048
     Dates: start: 20111031, end: 20111111
  20. CYCLIZINE [Concomitant]
     Indication: ANTIEMETIC SUPPORTIVE CARE
     Dosage: UNK
     Route: 048
     Dates: start: 20111003
  21. GABAPENTIN [Concomitant]
     Indication: PAIN
     Dosage: UNK
     Route: 048
     Dates: start: 20110930, end: 20111017
  22. MAGNESIUM SULFATE [Concomitant]
     Indication: SUPPLEMENTATION THERAPY
     Dosage: UNK
     Route: 048
     Dates: start: 20110926
  23. DAPSONE [Concomitant]
     Indication: INFECTION PROPHYLAXIS
     Dosage: UNK
     Route: 048
     Dates: start: 20110711
  24. FLUCONAZOLE [Concomitant]
     Dosage: UNK
     Route: 048
     Dates: start: 20111013, end: 20111017
  25. PANADOL                            /00020001/ [Concomitant]
     Indication: PAIN
     Dosage: 10 MG, UNK
     Route: 048
     Dates: start: 20100114
  26. ESOMEPRAZOLE [Concomitant]
     Indication: ANTACID THERAPY
     Dosage: 40 MG, UNK
     Route: 048
     Dates: start: 20100115
  27. CHOLECALCIFEROL [Concomitant]
     Indication: SUPPLEMENTATION THERAPY
     Dosage: UNK
     Route: 048
     Dates: start: 20110803
  28. AMPHOTERICIN B [Concomitant]
     Indication: ANTIFUNGAL TREATMENT
     Dosage: UNK
     Route: 048
     Dates: start: 20111012, end: 20111024
  29. CALCIUM CARBONATE [Concomitant]
     Indication: SUPPLEMENTATION THERAPY
     Dosage: UNK
     Route: 048
     Dates: start: 20111030
  30. VELCADE [Suspect]
     Indication: MULTIPLE MYELOMA
     Dosage: 1.8 MG, UNK
     Route: 065
     Dates: start: 20110930, end: 20111117
  31. VALGANCICLOVIR [Concomitant]
     Indication: ANTI-INFECTIVE THERAPY
     Dosage: UNK
     Route: 048
     Dates: start: 20110101
  32. SERTRALINE [Concomitant]
     Indication: DEPRESSION
     Dosage: UNK
     Route: 048
     Dates: start: 20100517
  33. VORICONAZOLE [Concomitant]
     Dosage: UNK
     Route: 042
     Dates: start: 20111030, end: 20111108
  34. POTASSIUM ACETATE [Concomitant]
     Dosage: UNK
     Route: 042
     Dates: start: 20111030, end: 20111108
  35. MAGNESIUM SULFATE [Concomitant]
     Dosage: UNK
     Route: 042
     Dates: start: 20111102
  36. POTASSIUM ACETATE [Concomitant]
     Indication: SUPPLEMENTATION THERAPY
     Dosage: UNK
     Route: 048
     Dates: start: 20110926
  37. ACETAMINOPHEN [Concomitant]
     Indication: ANALGESIC THERAPY
     Dosage: UNK
     Route: 048
     Dates: start: 20111031

REACTIONS (3)
  - CLOSTRIDIUM DIFFICILE COLITIS [None]
  - LOWER RESPIRATORY TRACT INFECTION [None]
  - ORAL CANDIDIASIS [None]
